FAERS Safety Report 6211904-1 (Version None)
Quarter: 2009Q2

REPORT INFORMATION
  Report Type: 
  Country: None (occurrence: None)
  Receive Date: 20090602
  Receipt Date: 20090526
  Transmission Date: 20091009
  Serious: Yes (Other)
  Sender: FDA-Public Use
  Company Number: FR-ALLERGAN-0907468US

PATIENT
  Sex: Male

DRUGS (1)
  1. VISTABEL [Suspect]
     Indication: SKIN WRINKLING

REACTIONS (2)
  - SPEECH DISORDER [None]
  - TONGUE PARALYSIS [None]
